FAERS Safety Report 7114741-9 (Version None)
Quarter: 2010Q4

REPORT INFORMATION
  Report Type: 
  Country: None (occurrence: None)
  Receive Date: 20101122
  Receipt Date: 20101111
  Transmission Date: 20110411
  Serious: No
  Sender: FDA-Public Use
  Company Number: US-BIOGENIDEC-2010BI025886

PATIENT
  Sex: Female

DRUGS (1)
  1. TYSABRI [Suspect]
     Indication: MULTIPLE SCLEROSIS
     Route: 042
     Dates: start: 20091229

REACTIONS (14)
  - ALOPECIA [None]
  - ANAEMIA [None]
  - ANTINUCLEAR ANTIBODY INCREASED [None]
  - BLISTER [None]
  - BUTTERFLY RASH [None]
  - DERMATITIS BULLOUS [None]
  - FATIGUE [None]
  - INFLUENZA LIKE ILLNESS [None]
  - MULTIPLE SCLEROSIS RELAPSE [None]
  - PROTEIN URINE PRESENT [None]
  - RASH MACULAR [None]
  - SYSTEMIC LUPUS ERYTHEMATOSUS [None]
  - VITAMIN D DECREASED [None]
  - WHITE BLOOD CELL COUNT INCREASED [None]
